FAERS Safety Report 17819614 (Version 3)
Quarter: 2021Q1

REPORT INFORMATION
  Report Type: Report from Study
  Country: US (occurrence: US)
  Receive Date: 20200523
  Receipt Date: 20210107
  Transmission Date: 20210419
  Serious: Yes (Hospitalization)
  Sender: FDA-Public Use
  Company Number: NVSC2020US140221

PATIENT
  Sex: Male

DRUGS (1)
  1. ENTRESTO [Suspect]
     Active Substance: SACUBITRIL\VALSARTAN
     Indication: CARDIAC FAILURE CHRONIC
     Dosage: UNK
     Route: 048

REACTIONS (12)
  - Product dose omission issue [Unknown]
  - Skin ulcer [Unknown]
  - Heart rate decreased [Unknown]
  - Peripheral swelling [Unknown]
  - Pain [Unknown]
  - Hypotension [Unknown]
  - Blood pressure abnormal [Unknown]
  - Dyspnoea [Unknown]
  - Dizziness [Unknown]
  - Gait disturbance [Unknown]
  - Cough [Unknown]
  - Haematoma [Unknown]
